FAERS Safety Report 9546963 (Version 1)
Quarter: 2013Q2

REPORT INFORMATION
  Report Type: Spontaneous
  Country: US (occurrence: None)
  Receive Date: 20130606
  Receipt Date: 20130606
  Transmission Date: 20140414
  Serious: No
  Sender: FDA-Public Use
  Company Number: 163-POMAL-13031613

PATIENT
  Age: 65 Year
  Sex: Female

DRUGS (5)
  1. POMALYST [Suspect]
     Indication: PLASMA CELL MYELOMA
     Route: 048
     Dates: start: 20130221
  2. DEXAMETHASONE [Concomitant]
  3. MORPHINE SULFATE ER [Concomitant]
  4. SYNTHROID (LEVOTHYROXINE SODIUM) [Concomitant]
  5. VITAMIN D (CHOLECALCIFEROL) [Concomitant]

REACTIONS (4)
  - Hiccups [None]
  - Fatigue [None]
  - Muscle spasms [None]
  - Diarrhoea [None]
